FAERS Safety Report 16006731 (Version 1)
Quarter: 2019Q1

REPORT INFORMATION
  Report Type: Spontaneous
  Country: DE (occurrence: DE)
  Receive Date: 20190226
  Receipt Date: 20190226
  Transmission Date: 20190418
  Serious: Yes (Hospitalization)
  Sender: FDA-Public Use
  Company Number: DE-MYLANLABS-2019M1016098

PATIENT
  Age: 70 Year
  Sex: Male
  Weight: 82 kg

DRUGS (19)
  1. ALLOPURINOL. [Concomitant]
     Active Substance: ALLOPURINOL
     Indication: RENAL IMPAIRMENT
     Dosage: 300 MILLIGRAM, QD
     Route: 065
     Dates: start: 2008
  2. LOCOL                              /01224502/ [Concomitant]
     Active Substance: FLUVASTATIN SODIUM
     Indication: HYPERLIPIDAEMIA
     Dosage: 80 MILLIGRAM, QD
     Route: 065
     Dates: start: 1998
  3. TORASEMIDE [Concomitant]
     Active Substance: TORSEMIDE
     Indication: HYPERTENSION
     Dosage: 20 MG, BID (40 MG, QD)
     Route: 048
     Dates: start: 2000
  4. FENTANYL. [Suspect]
     Active Substance: FENTANYL
     Indication: PAIN
     Dosage: 5 MG, TID (25 ?G/H)
     Route: 065
     Dates: start: 200912
  5. TRYASOL CODEIN [Suspect]
     Active Substance: CODEINE PHOSPHATE
     Dosage: 120 GTT DROPS
     Route: 048
     Dates: start: 201001, end: 20100311
  6. NITROSPRAY [Concomitant]
     Active Substance: NITROGLYCERIN
     Indication: CORONARY ARTERY DISEASE
     Dosage: 0.8 MILLIGRAM
     Route: 065
  7. ACC                                /00082801/ [Concomitant]
     Active Substance: ACETYLCYSTEINE
     Indication: BRONCHIAL CARCINOMA
     Dosage: 600 MILLIGRAM, QD
     Route: 065
     Dates: start: 2009
  8. NOVAMINSULFON [Concomitant]
     Active Substance: METAMIZOLE
     Indication: PAIN
     Dosage: 120 GTT DROPS, QD
     Route: 065
  9. TRYASOL CODEIN [Suspect]
     Active Substance: CODEINE PHOSPHATE
     Indication: BRONCHIAL CARCINOMA
     Dosage: 40 GTT, TID
     Route: 048
     Dates: start: 201001, end: 20100311
  10. ATACAND [Suspect]
     Active Substance: CANDESARTAN CILEXETIL
     Indication: CARDIAC FAILURE CHRONIC
     Dosage: TAGESSCHEMA: 8-0-16
     Route: 065
  11. NEORECORMON [Concomitant]
     Active Substance: ERYTHROPOIETIN
     Indication: NEPHROGENIC ANAEMIA
     Dosage: 4000 INTERNATIONAL UNIT, QW
     Route: 065
     Dates: start: 2008
  12. BONDIOL [Concomitant]
     Active Substance: ALFACALCIDOL
     Indication: CHRONIC KIDNEY DISEASE-MINERAL AND BONE DISORDER
     Dosage: 1 DOSAGE FORM, QD
     Route: 065
     Dates: start: 2008
  13. DICLOFENAC [Concomitant]
     Active Substance: DICLOFENAC
     Indication: OSTEOARTHRITIS
     Dosage: UNK
     Route: 048
  14. DEXAMETHASONE. [Concomitant]
     Active Substance: DEXAMETHASONE
     Indication: BRONCHIAL CARCINOMA
     Dosage: 12 MILLIGRAM, QD
     Route: 065
     Dates: start: 200904
  15. BISOPROLOL [Concomitant]
     Active Substance: BISOPROLOL
     Indication: CORONARY ARTERY DISEASE
     Dosage: 10 MG, QD
     Route: 065
     Dates: start: 1998
  16. L-THYROXIN                         /00068002/ [Concomitant]
     Active Substance: LEVOTHYROXINE SODIUM
     Indication: HYPOTHYROIDISM
     Dosage: 125 MICROGRAM
     Route: 065
  17. SEVREDOL [Suspect]
     Active Substance: MORPHINE
     Indication: PAIN
     Dosage: 10 MILLIGRAM, QD
     Route: 048
     Dates: start: 201001
  18. ASPIRIN. [Concomitant]
     Active Substance: ASPIRIN
     Dosage: UNK
  19. PANTOPRAZOLE [Concomitant]
     Active Substance: PANTOPRAZOLE
     Indication: PROPHYLAXIS AGAINST GASTROINTESTINAL ULCER
     Dosage: 40 MILLIGRAM, QD
     Route: 065
     Dates: start: 1998

REACTIONS (2)
  - Acute kidney injury [Unknown]
  - Somnolence [Unknown]

NARRATIVE: CASE EVENT DATE: 20100310
